FAERS Safety Report 18264346 (Version 1)
Quarter: 2020Q3

REPORT INFORMATION
  Report Type: Spontaneous
  Country: US (occurrence: US)
  Receive Date: 20200914
  Receipt Date: 20200914
  Transmission Date: 20201103
  Serious: Yes (Life-Threatening, Hospitalization, Other)
  Sender: FDA-Public Use
  Company Number: US-SLATE RUN PHARMACEUTICALS-20US000276

PATIENT

DRUGS (9)
  1. OXYGEN. [Concomitant]
     Active Substance: OXYGEN
     Indication: RESUSCITATION
     Route: 064
  2. HEPARIN [Concomitant]
     Active Substance: HEPARIN SODIUM
     Indication: EXPOSURE DURING PREGNANCY
     Route: 064
  3. OXYGEN. [Concomitant]
     Active Substance: OXYGEN
     Indication: EXPOSURE DURING PREGNANCY
     Dosage: UNK
     Route: 065
  4. HYDROXYCHLOROQUINE [Concomitant]
     Active Substance: HYDROXYCHLOROQUINE
     Indication: EXPOSURE DURING PREGNANCY
     Route: 064
  5. AZITHROMYCIN USP [Suspect]
     Active Substance: AZITHROMYCIN
     Indication: EXPOSURE DURING PREGNANCY
     Route: 064
  6. REMDESIVIR. [Concomitant]
     Active Substance: REMDESIVIR
     Indication: EXPOSURE DURING PREGNANCY
     Route: 064
  7. ENOXAPARIN [Concomitant]
     Active Substance: ENOXAPARIN
     Indication: EXPOSURE DURING PREGNANCY
     Route: 064
  8. METHYLPREDNISOLONE. [Concomitant]
     Active Substance: METHYLPREDNISOLONE
     Indication: EXPOSURE DURING PREGNANCY
     Route: 064
  9. CEFTRIAXONE. [Concomitant]
     Active Substance: CEFTRIAXONE
     Indication: EXPOSURE DURING PREGNANCY
     Route: 064

REACTIONS (8)
  - Premature baby [Recovering/Resolving]
  - Transient tachypnoea of the newborn [Recovering/Resolving]
  - Hyperbilirubinaemia neonatal [Recovering/Resolving]
  - Foetal exposure during pregnancy [Unknown]
  - Poor feeding infant [Recovering/Resolving]
  - Sepsis neonatal [Recovering/Resolving]
  - Neonatal respiratory distress [Recovering/Resolving]
  - Pulmonary sequestration [Recovering/Resolving]
